FAERS Safety Report 4622406-8 (Version None)
Quarter: 2005Q1

REPORT INFORMATION
  Report Type: 
  Country: None (occurrence: None)
  Receive Date: 20050325
  Receipt Date: 20050325
  Transmission Date: 20050727
  Serious: Yes (Death)
  Sender: FDA-Public Use
  Company Number: None

PATIENT
  Age: 16 Year
  Sex: Female
  Weight: 43 kg

DRUGS (9)
  1. DAUNOMYCIN [Suspect]
     Indication: ACUTE LYMPHOCYTIC LEUKAEMIA
     Dosage: 25 MG PER M2 (40 MG) WEEKLY
  2. PREDNISONE [Suspect]
     Dosage: 95 MG PER DAY
  3. INSULIN [Concomitant]
  4. GENTAMICIN [Concomitant]
  5. VANCOMYCIN [Concomitant]
  6. ZOSYN [Concomitant]
  7. DOPAMINE [Concomitant]
  8. DOBUTAMIN [Concomitant]
  9. EPINEPHRINE [Concomitant]

REACTIONS (8)
  - CEREBRAL HAEMORRHAGE [None]
  - DISSEMINATED INTRAVASCULAR COAGULATION [None]
  - ENTEROBACTER INFECTION [None]
  - HYPOTENSION [None]
  - PULMONARY OEDEMA [None]
  - SEPSIS [None]
  - SERRATIA INFECTION [None]
  - STREPTOCOCCAL INFECTION [None]
